FAERS Safety Report 4659691-2 (Version None)
Quarter: 2005Q2

REPORT INFORMATION
  Report Type: 
  Country: None (occurrence: None)
  Receive Date: 20050420
  Receipt Date: 20050311
  Transmission Date: 20051028
  Serious: No
  Sender: FDA-Public Use
  Company Number: PHEH2005US03082

PATIENT
  Sex: Male

DRUGS (1)
  1. ENABLEX [Suspect]

REACTIONS (2)
  - FAECES HARD [None]
  - FLATULENCE [None]
